FAERS Safety Report 9209189 (Version 1)
Quarter: 2013Q2

REPORT INFORMATION
  Report Type: Spontaneous
  Country: DE (occurrence: DE)
  Receive Date: 20130404
  Receipt Date: 20130404
  Transmission Date: 20140414
  Serious: Yes (Hospitalization, Other)
  Sender: FDA-Public Use
  Company Number: DE-AMGEN-DEUSP2012078760

PATIENT
  Age: 73 Year
  Sex: Male

DRUGS (4)
  1. ENBREL [Suspect]
     Indication: RHEUMATOID ARTHRITIS
     Dosage: UNK
     Dates: start: 20120601, end: 20121031
  2. METHOTREXAT                        /00113801/ [Concomitant]
     Dosage: UNK
  3. LEFLUNOMIDE [Concomitant]
     Dosage: UNK
  4. CHLOROQUINE [Concomitant]
     Dosage: UNK

REACTIONS (2)
  - Mental disorder [Not Recovered/Not Resolved]
  - Pneumonia [Not Recovered/Not Resolved]
